FAERS Safety Report 4349672-0 (Version None)
Quarter: 2004Q1

REPORT INFORMATION
  Report Type: 
  Country: None (occurrence: None)
  Receive Date: 20040329
  Receipt Date: 20031217
  Transmission Date: 20041129
  Serious: No
  Sender: FDA-Public Use
  Company Number: USA030127104

PATIENT
  Age: 8 Year
  Sex: Male
  Weight: 30 kg

DRUGS (3)
  1. STRATTERA [Suspect]
     Dosage: 25 MG/IN THE MORNING
     Dates: start: 20030125
  2. CLARITIN [Concomitant]
  3. SINGULAIR [Concomitant]

REACTIONS (4)
  - ANOREXIA [None]
  - ASTHENIA [None]
  - FLUID INTAKE REDUCED [None]
  - RESTLESSNESS [None]
